FAERS Safety Report 19651575 (Version 1)
Quarter: 2021Q3

REPORT INFORMATION
  Report Type: Spontaneous
  Country: UA (occurrence: UA)
  Receive Date: 20210803
  Receipt Date: 20210803
  Transmission Date: 20211014
  Serious: Yes (Life-Threatening, Hospitalization)
  Sender: FDA-Public Use
  Company Number: UA-BAYER-2021-182630

PATIENT
  Age: 56 Year

DRUGS (6)
  1. DEXAMETHASONE. [Concomitant]
     Active Substance: DEXAMETHASONE
     Indication: COVID-19
     Dosage: 8 UNK
     Dates: start: 20200929
  2. MOXIFLOXACIN ORAL [Suspect]
     Active Substance: MOXIFLOXACIN
     Indication: COVID-19
     Dosage: UNK
     Dates: start: 20200926
  3. DEXAMETHASONE. [Concomitant]
     Active Substance: DEXAMETHASONE
     Indication: COVID-19
     Dosage: 4 MG
     Route: 030
     Dates: start: 20200926
  4. LORAXONE [Concomitant]
     Indication: COVID-19
     Dosage: UNK
     Dates: start: 20200926, end: 20200929
  5. CLEXANE [Concomitant]
     Active Substance: ENOXAPARIN SODIUM
     Indication: COVID-19
     Dosage: UNK
     Dates: start: 20200926
  6. LINEZOLID. [Concomitant]
     Active Substance: LINEZOLID
     Indication: COVID-19
     Dosage: 600 MG, QD
     Dates: start: 20200929

REACTIONS (2)
  - Pulmonary haematoma [Recovered/Resolved]
  - Traumatic haemothorax [Recovered/Resolved]

NARRATIVE: CASE EVENT DATE: 202010
